FAERS Safety Report 6527422-7 (Version None)
Quarter: 2010Q1

REPORT INFORMATION
  Report Type: 
  Country: None (occurrence: None)
  Receive Date: 20100105
  Receipt Date: 20091224
  Transmission Date: 20100710
  Serious: Yes (Hospitalization, Other)
  Sender: FDA-Public Use
  Company Number: ES-AMGEN-QUU339176

PATIENT
  Sex: Male
  Weight: 100 kg

DRUGS (4)
  1. NEULASTA [Suspect]
     Indication: CHEMOTHERAPY
     Route: 058
     Dates: start: 20090310, end: 20090310
  2. BLEOMYCIN SULFATE [Concomitant]
     Route: 065
  3. ETOPOSIDE [Concomitant]
  4. CISPLATIN [Concomitant]

REACTIONS (2)
  - DRUG ADMINISTRATION ERROR [None]
  - FEBRILE NEUTROPENIA [None]
